FAERS Safety Report 7206698-7 (Version None)
Quarter: 2011Q1

REPORT INFORMATION
  Report Type: 
  Country: None (occurrence: None)
  Receive Date: 20110103
  Receipt Date: 20101228
  Transmission Date: 20110831
  Serious: Yes (Other)
  Sender: FDA-Public Use
  Company Number: US-PFIZER INC-2010105391

PATIENT
  Sex: Male
  Weight: 102 kg

DRUGS (3)
  1. LYRICA [Suspect]
     Indication: NEURALGIA
     Dosage: 100 MG, 3X/DAY
     Route: 048
  2. MORPHINE [Concomitant]
     Indication: NEURALGIA
     Dosage: 15 MG, 3X/DAY
     Route: 048
  3. PERCOCET [Concomitant]
     Indication: NEURALGIA
     Dosage: UNK
     Route: 048

REACTIONS (2)
  - MALAISE [None]
  - WEIGHT INCREASED [None]
